FAERS Safety Report 24900560 (Version 1)
Quarter: 2025Q1

REPORT INFORMATION
  Report Type: Spontaneous
  Country: US (occurrence: US)
  Receive Date: 20250129
  Receipt Date: 20250129
  Transmission Date: 20250409
  Serious: No
  Sender: MYLAN
  Company Number: US-MYLANLABS-2025M1004970

PATIENT
  Sex: Male

DRUGS (1)
  1. GLATIRAMER [Suspect]
     Active Substance: GLATIRAMER
     Indication: Multiple sclerosis
     Route: 065
     Dates: start: 202403

REACTIONS (1)
  - Treatment failure [Unknown]
